FAERS Safety Report 4841166-9 (Version None)
Quarter: 2005Q4

REPORT INFORMATION
  Report Type: 
  Country: None (occurrence: None)
  Receive Date: 20051130
  Receipt Date: 20051020
  Transmission Date: 20060501
  Serious: No
  Sender: FDA-Public Use
  Company Number: US-BRISTOL-MYERS SQUIBB COMPANY-13151709

PATIENT
  Age: 50 Year
  Sex: Female
  Weight: 226 kg

DRUGS (2)
  1. ABILIFY [Suspect]
     Indication: BIPOLAR DISORDER
     Route: 048
  2. KLONOPIN [Concomitant]
     Indication: CARDIAC DISORDER

REACTIONS (1)
  - INSOMNIA [None]
